FAERS Safety Report 8469326-9 (Version None)
Quarter: 2012Q2

REPORT INFORMATION
  Report Type: 
  Country: None (occurrence: None)
  Receive Date: 20120626
  Receipt Date: 20120613
  Transmission Date: 20120825
  Serious: No
  Sender: FDA-Public Use
  Company Number: US-ASTRAZENECA-2012SE39781

PATIENT
  Age: 3 Year
  Sex: Female

DRUGS (2)
  1. PREVACID [Concomitant]
  2. NEXIUM [Suspect]
     Dosage: HALF OF 20 MG PACKET, EACH TIME
     Route: 048

REACTIONS (3)
  - DISCOMFORT [None]
  - DRUG DOSE OMISSION [None]
  - OFF LABEL USE [None]
